FAERS Safety Report 9735902 (Version 2)
Quarter: 2013Q4

REPORT INFORMATION
  Report Type: Spontaneous
  Country: US (occurrence: US)
  Receive Date: 20131206
  Receipt Date: 20131206
  Transmission Date: 20140711
  Serious: No
  Sender: FDA-Public Use
  Company Number: US-GILEAD-2009-0023725

PATIENT
  Sex: Female

DRUGS (8)
  1. LETAIRIS [Suspect]
     Indication: PULMONARY ARTERIAL HYPERTENSION
     Route: 048
     Dates: start: 20081008, end: 20090810
  2. AMLODIPINE [Concomitant]
  3. PREDNISONE [Concomitant]
     Indication: IDIOPATHIC PULMONARY FIBROSIS
  4. FLONASE [Concomitant]
  5. VICODIN [Concomitant]
  6. ASPIRIN [Concomitant]
  7. VITAMIN C [Concomitant]
  8. POTASSIUM [Concomitant]

REACTIONS (2)
  - Arthralgia [Recovering/Resolving]
  - Abdominal pain [Recovering/Resolving]
